FAERS Safety Report 11343756 (Version 1)
Quarter: 2015Q3

REPORT INFORMATION
  Report Type: Spontaneous
  Country: IT (occurrence: IT)
  Receive Date: 20150806
  Receipt Date: 20150806
  Transmission Date: 20151125
  Serious: Yes (Hospitalization)
  Sender: FDA-Public Use
  Company Number: IT-SA-2015SA114170

PATIENT
  Age: 72 Year
  Sex: Male

DRUGS (1)
  1. KARVEZIDE [Suspect]
     Active Substance: HYDROCHLOROTHIAZIDE\IRBESARTAN
     Dosage: KARVEZIDE (HYDROCHLOROTHIAZIDE/IRBESARTAN) 300 MG/ 12.5 MG TABLETS
     Route: 048
     Dates: start: 20150107, end: 20150107

REACTIONS (4)
  - Agitation [Recovered/Resolved]
  - Injury [Recovered/Resolved]
  - Tremor [Recovered/Resolved]
  - Overdose [Unknown]

NARRATIVE: CASE EVENT DATE: 20150107
